FAERS Safety Report 15450812 (Version 4)
Quarter: 2020Q3

REPORT INFORMATION
  Report Type: Report from Study
  Country: ES (occurrence: ES)
  Receive Date: 20181001
  Receipt Date: 20190510
  Transmission Date: 20201104
  Serious: Yes (Hospitalization)
  Sender: FDA-Public Use
  Company Number: ES-ROCHE-2190493

PATIENT
  Age: 40 Year
  Sex: Female

DRUGS (2)
  1. RO6895882 (CEA?IL2V) [Suspect]
     Active Substance: CERGUTUZUMAB AMUNALEUKIN
     Indication: NEOPLASM
     Dosage: TITRATED TO 20 MG ON 04/SEP/2018?LAST DOSE PRIOR TO SAE ONSET ON: 18/SEP/2018
     Route: 042
     Dates: start: 20180821, end: 20180918
  2. ATEZOLIZUMAB. [Suspect]
     Active Substance: ATEZOLIZUMAB
     Indication: NEOPLASM
     Dosage: LAST DOSE PRIOR TO SAE ONSET ON: 11/SEP/2018
     Route: 042
     Dates: start: 20180821, end: 20180911

REACTIONS (1)
  - Enteritis [Recovered/Resolved]

NARRATIVE: CASE EVENT DATE: 20180920
